FAERS Safety Report 24936380 (Version 1)
Quarter: 2025Q1

REPORT INFORMATION
  Report Type: Spontaneous
  Country: US (occurrence: None)
  Receive Date: 20250206
  Receipt Date: 20250206
  Transmission Date: 20250409
  Serious: Yes (Hospitalization)
  Sender: FDA-CTU
  Company Number: None

PATIENT
  Age: 63 Year
  Sex: Male
  Weight: 109.6 kg

DRUGS (3)
  1. DARATUMUMAB [Suspect]
     Active Substance: DARATUMUMAB
     Dates: end: 20250117
  2. DEXAMETHASONE [Suspect]
     Active Substance: DEXAMETHASONE
     Dates: end: 20250117
  3. LENALIDOMIDE [Suspect]
     Active Substance: LENALIDOMIDE
     Dates: end: 20250129

REACTIONS (6)
  - Dizziness [None]
  - Visual impairment [None]
  - Vitreous floaters [None]
  - Electrocardiogram QT prolonged [None]
  - Ventricular extrasystoles [None]
  - Myocardial ischaemia [None]

NARRATIVE: CASE EVENT DATE: 20250129
